FAERS Safety Report 5195583-0 (Version None)
Quarter: 2007Q1

REPORT INFORMATION
  Report Type: 
  Country: None (occurrence: None)
  Receive Date: 20070102
  Receipt Date: 20061219
  Transmission Date: 20070707
  Serious: Yes (Other)
  Sender: FDA-Public Use
  Company Number: PHEH2006US15160

PATIENT
  Sex: Female
  Weight: 78.004 kg

DRUGS (6)
  1. ZOLEDRONIC ACID [Suspect]
     Dosage: 4MG, EVERY 6 MONTHS
     Route: 042
     Dates: start: 20020101
  2. ZOLEDRONIC ACID [Suspect]
     Dosage: 4MG, EVERY 6 MONTHS
     Route: 042
     Dates: start: 20060125
  3. LETROZOLE [Suspect]
     Indication: BREAST CANCER
     Route: 048
     Dates: start: 20020101
  4. LETROZOLE [Suspect]
     Dosage: 2.5 MG, QD
     Route: 048
     Dates: start: 20060125
  5. CALCIUM WITH VITAMIN D [Concomitant]
  6. TOPROL-XL [Concomitant]

REACTIONS (3)
  - OSTEONECROSIS [None]
  - PAIN IN JAW [None]
  - TEMPOROMANDIBULAR JOINT SYNDROME [None]
